FAERS Safety Report 5270925-6 (Version None)
Quarter: 2007Q1

REPORT INFORMATION
  Report Type: 
  Country: None (occurrence: None)
  Receive Date: 20070321
  Receipt Date: 20070312
  Transmission Date: 20070707
  Serious: Yes (Hospitalization, Disabling)
  Sender: FDA-Public Use
  Company Number: IE-AVENTIS-200615475GDDC

PATIENT
  Age: 44 Year
  Sex: Female

DRUGS (2)
  1. DOCETAXEL [Suspect]
     Indication: BREAST CANCER RECURRENT
     Route: 042
     Dates: start: 20060201, end: 20060201
  2. HERCEPTIN [Suspect]
     Indication: BREAST CANCER RECURRENT
     Dates: start: 20060201, end: 20060501

REACTIONS (5)
  - ABDOMINAL PAIN [None]
  - COELIAC DISEASE [None]
  - DIARRHOEA [None]
  - LETHARGY [None]
  - WEIGHT DECREASED [None]
